FAERS Safety Report 4648310-7 (Version None)
Quarter: 2005Q2

REPORT INFORMATION
  Report Type: 
  Country: None (occurrence: None)
  Receive Date: 20050426
  Receipt Date: 20050331
  Transmission Date: 20051028
  Serious: Yes (Death, Hospitalization)
  Sender: FDA-Public Use
  Company Number: XL119050030

PATIENT
  Age: 75 Year
  Sex: Male
  Weight: 70 kg

DRUGS (10)
  1. 5-FU PLUS [Suspect]
     Indication: BILIARY NEOPLASM
     Dosage: SEE IMAGE
     Dates: start: 20050110
  2. LEUCOVORIN CALCIUM [Suspect]
     Indication: BILIARY NEOPLASM
     Dosage: SEE IMAGE
     Dates: start: 20050110
  3. IRON (IRON) [Concomitant]
  4. METOPROLOL TARTRATE [Concomitant]
     Indication: BILIARY NEOPLASM
     Dosage: SEE IMAGE
  5. ZOFRAN [Concomitant]
  6. ASPIRIN [Concomitant]
  7. COMPAZINE [Concomitant]
  8. HEPARIN [Concomitant]
  9. .. [Concomitant]
  10. .. [Concomitant]

REACTIONS (2)
  - FALL [None]
  - NEUTROPENIC SEPSIS [None]
